FAERS Safety Report 13234258 (Version 1)
Quarter: 2017Q1

REPORT INFORMATION
  Report Type: Spontaneous
  Country: US (occurrence: US)
  Receive Date: 20170215
  Receipt Date: 20170215
  Transmission Date: 20170428
  Serious: Yes (Hospitalization)
  Sender: FDA-Public Use
  Company Number: None

PATIENT
  Sex: Male

DRUGS (4)
  1. LANSOPRAZOLE. [Suspect]
     Active Substance: LANSOPRAZOLE
  2. PANTOPRAZOLE [Suspect]
     Active Substance: PANTOPRAZOLE SODIUM
  3. CEFAZOLIN [Suspect]
     Active Substance: CEFAZOLIN
  4. CEPHALEXIN. [Suspect]
     Active Substance: CEPHALEXIN

REACTIONS (3)
  - Neutrophil count increased [None]
  - White blood cell count increased [None]
  - Clostridium difficile infection [None]

NARRATIVE: CASE EVENT DATE: 20150517
